FAERS Safety Report 8517333-X (Version None)
Quarter: 2012Q3

REPORT INFORMATION
  Report Type: 
  Country: None (occurrence: None)
  Receive Date: 20120718
  Receipt Date: 20120709
  Transmission Date: 20120928
  Serious: Yes (Other)
  Sender: FDA-Public Use
  Company Number: CA-JNJFOC-20120704655

PATIENT
  Sex: Male
  Weight: 75 kg

DRUGS (12)
  1. REMICADE [Suspect]
     Indication: CROHN'S DISEASE
     Route: 042
     Dates: start: 20050215
  2. ACETYLSALICYLIC ACID SRT [Concomitant]
     Route: 065
  3. CALCIUM CARBONATE [Concomitant]
     Route: 065
  4. SALMON OIL [Concomitant]
     Route: 065
  5. REMICADE [Suspect]
     Indication: ANKYLOSING SPONDYLITIS
     Route: 042
     Dates: start: 20050215
  6. IMURAN [Concomitant]
     Route: 065
  7. IRON [Concomitant]
     Route: 065
  8. MULTI-VITAMINS [Concomitant]
     Route: 065
  9. PREVACID [Concomitant]
     Route: 065
  10. TOCOPHEROL CONCENTRATE CAP [Concomitant]
     Route: 065
  11. FLOMAX [Concomitant]
     Route: 065
  12. REMICADE [Suspect]
     Indication: RHEUMATOID ARTHRITIS
     Route: 042
     Dates: start: 20050215

REACTIONS (2)
  - CROHN'S DISEASE [None]
  - SURGERY [None]
